FAERS Safety Report 5076431-6 (Version None)
Quarter: 2006Q3

REPORT INFORMATION
  Report Type: 
  Country: None (occurrence: None)
  Receive Date: 20060725
  Receipt Date: 20060404
  Transmission Date: 20061208
  Serious: No
  Sender: FDA-Public Use
  Company Number: 200612185BWH

PATIENT

DRUGS (1)
  1. NEXAVAR [Suspect]
     Dates: start: 20060328

REACTIONS (2)
  - GINGIVAL SWELLING [None]
  - TREMOR [None]
